FAERS Safety Report 25744751 (Version 1)
Quarter: 2025Q3

REPORT INFORMATION
  Report Type: Spontaneous
  Country: US (occurrence: US)
  Receive Date: 20250901
  Receipt Date: 20250901
  Transmission Date: 20251020
  Serious: Yes (Other)
  Sender: STRIDES
  Company Number: US-STRIDES ARCOLAB LIMITED-2025SP010959

PATIENT
  Age: 73 Year
  Sex: Female

DRUGS (15)
  1. LIDOCAINE [Suspect]
     Active Substance: LIDOCAINE
     Indication: Palmar-plantar erythrodysaesthesia syndrome
     Route: 065
  2. CELECOXIB [Suspect]
     Active Substance: CELECOXIB
     Indication: Palmar-plantar erythrodysaesthesia syndrome
     Route: 065
  3. CELECOXIB [Suspect]
     Active Substance: CELECOXIB
     Route: 065
  4. HALOBETASOL [Suspect]
     Active Substance: HALOBETASOL
     Indication: Palmar-plantar erythrodysaesthesia syndrome
     Route: 061
  5. UREA [Suspect]
     Active Substance: UREA
     Indication: Palmar-plantar erythrodysaesthesia syndrome
     Route: 061
  6. CLOBETASOL [Suspect]
     Active Substance: CLOBETASOL
     Indication: Palmar-plantar erythrodysaesthesia syndrome
     Route: 061
  7. ZINC SULFATE [Suspect]
     Active Substance: ZINC SULFATE
     Indication: Palmar-plantar erythrodysaesthesia syndrome
     Route: 048
  8. DICLOFENAC [Suspect]
     Active Substance: DICLOFENAC
     Indication: Pain
     Route: 065
  9. UREA [Concomitant]
     Active Substance: UREA
     Indication: Palmar-plantar erythrodysaesthesia syndrome
     Route: 061
  10. Betameth dipropionate [Concomitant]
     Indication: Palmar-plantar erythrodysaesthesia syndrome
     Route: 061
  11. LIDOCAINE [Concomitant]
     Active Substance: LIDOCAINE
     Indication: Palmar-plantar erythrodysaesthesia syndrome
     Route: 065
  12. CAPECITABINE [Concomitant]
     Active Substance: CAPECITABINE
     Indication: Breast cancer metastatic
     Route: 065
  13. CAPECITABINE [Concomitant]
     Active Substance: CAPECITABINE
     Route: 065
  14. DUPILUMAB [Concomitant]
     Active Substance: DUPILUMAB
     Indication: Palmar-plantar erythrodysaesthesia syndrome
     Route: 058
  15. DUPILUMAB [Concomitant]
     Active Substance: DUPILUMAB
     Route: 058

REACTIONS (3)
  - Disease progression [Recovering/Resolving]
  - Therapy non-responder [Unknown]
  - Off label use [Unknown]
